FAERS Safety Report 24881381 (Version 1)
Quarter: 2025Q1

REPORT INFORMATION
  Report Type: Spontaneous
  Country: US (occurrence: US)
  Receive Date: 20250124
  Receipt Date: 20250124
  Transmission Date: 20250409
  Serious: Yes (Disabling, Other)
  Sender: NOVO NORDISK
  Company Number: US-NOVOPROD-1329664

PATIENT
  Sex: Female

DRUGS (1)
  1. SEMAGLUTIDE [Suspect]
     Active Substance: SEMAGLUTIDE
     Indication: Incontinence
     Route: 058

REACTIONS (4)
  - Deafness [Unknown]
  - Disability [Unknown]
  - Off label use [Unknown]
  - Counterfeit product administered [Unknown]
